FAERS Safety Report 18932968 (Version 1)
Quarter: 2021Q1

REPORT INFORMATION
  Report Type: Spontaneous
  Country: US (occurrence: US)
  Receive Date: 20210224
  Receipt Date: 20210224
  Transmission Date: 20210420
  Serious: No
  Sender: FDA-Public Use
  Company Number: None

PATIENT
  Age: 62 Year
  Sex: Female
  Weight: 121.6 kg

DRUGS (21)
  1. ALEVE [Concomitant]
     Active Substance: NAPROXEN SODIUM
  2. GLUCOPHAGE [Concomitant]
     Active Substance: METFORMIN HYDROCHLORIDE
  3. MAG?OXIDE [Concomitant]
     Active Substance: MAGNESIUM OXIDE
  4. HYDROCHLOROTHIAZIDE. [Concomitant]
     Active Substance: HYDROCHLOROTHIAZIDE
  5. SALINE FLUSH ZR [Concomitant]
  6. AFRIN 12 HOUR [Concomitant]
  7. ALLOPURINOL. [Concomitant]
     Active Substance: ALLOPURINOL
  8. HYDROCORTISONE (PERIANAL) [Concomitant]
  9. LOSARTAN POTASSIUM. [Concomitant]
     Active Substance: LOSARTAN POTASSIUM
  10. TYLENOL [Concomitant]
     Active Substance: ACETAMINOPHEN
  11. LASIX [Concomitant]
     Active Substance: FUROSEMIDE
  12. PROPRANOLOL HCL ER [Concomitant]
  13. BOSULIF [Suspect]
     Active Substance: BOSUTINIB MONOHYDRATE
     Indication: CHRONIC MYELOID LEUKAEMIA
     Route: 048
     Dates: start: 20210209
  14. CITRACAL PETITES/VITAMIN D [Concomitant]
  15. METFORMIN HCL [Concomitant]
     Active Substance: METFORMIN HYDROCHLORIDE
  16. METHIMAZOLE. [Concomitant]
     Active Substance: METHIMAZOLE
  17. ASPIRIN 81 [Concomitant]
     Active Substance: ASPIRIN
  18. VITAMIN D (CHOLECALCIFEROL) [Concomitant]
     Active Substance: CHOLECALCIFEROL
  19. BENADRYL ALLERGY [Concomitant]
     Active Substance: DIPHENHYDRAMINE HYDROCHLORIDE
  20. FLONASE [Concomitant]
     Active Substance: FLUTICASONE PROPIONATE
  21. PROAIR HFA [Concomitant]
     Active Substance: ALBUTEROL SULFATE

REACTIONS (2)
  - Pruritus [None]
  - Dry skin [None]

NARRATIVE: CASE EVENT DATE: 20210223
